FAERS Safety Report 19372005 (Version 1)
Quarter: 2021Q2

REPORT INFORMATION
  Report Type: Spontaneous
  Country: FR (occurrence: FR)
  Receive Date: 20210603
  Receipt Date: 20210603
  Transmission Date: 20210717
  Serious: Yes (Other)
  Sender: FDA-Public Use
  Company Number: FR-009507513-2106FRA000566

PATIENT
  Age: 71 Year
  Sex: Male

DRUGS (1)
  1. KEYTRUDA [Suspect]
     Active Substance: PEMBROLIZUMAB
     Dosage: 6TH CYCLE
     Dates: start: 20210520

REACTIONS (3)
  - C-reactive protein abnormal [Unknown]
  - Sepsis [Unknown]
  - Bronchospasm [Unknown]

NARRATIVE: CASE EVENT DATE: 2021
